FAERS Safety Report 7703667 (Version 3)
Quarter: 2014Q3

REPORT INFORMATION
  Report Type: Report from Study
  Country: US (occurrence: US)
  Receive Date: 20101210
  Receipt Date: 20140717
  Transmission Date: 20150326
  Serious: Yes (Hospitalization)
  Sender: FDA-Public Use
  Company Number: US-JNJFOC-20101200868

PATIENT
  Age: 35 Year
  Sex: Female
  Weight: 60.8 kg

DRUGS (5)
  1. EXTRA STRENGTH TYLENOL PM [Suspect]
     Active Substance: ACETAMINOPHEN\DIPHENHYDRAMINE HYDROCHLORIDE
     Indication: SLEEP DISORDER THERAPY
     Dosage: 2-4 PILLS EVERY NIGHT FOR SLEEP FOR MORE THAN 2 YEARS.
     Route: 048
  2. EXTRA STRENGTH TYLENOL PM [Suspect]
     Active Substance: ACETAMINOPHEN\DIPHENHYDRAMINE HYDROCHLORIDE
     Indication: SLEEP DISORDER THERAPY
     Dosage: TOOK A ^HANDFUL^ OF PILLS
     Route: 048
     Dates: start: 20101114, end: 20101114
  3. METHYLPHENIDATE [Concomitant]
     Active Substance: METHYLPHENIDATE
     Indication: ATTENTION DEFICIT/HYPERACTIVITY DISORDER
     Dosage: TAKES OCCASIONAL DOSES
  4. HYDROCODONE [Concomitant]
     Active Substance: HYDROCODONE
  5. COCAINE [Concomitant]
     Active Substance: COCAINE

REACTIONS (7)
  - Ischaemic hepatitis [Recovered/Resolved]
  - Prothrombin time prolonged [Recovered/Resolved]
  - Nausea [Recovered/Resolved]
  - Intentional overdose [Recovered/Resolved]
  - Urinary retention [Recovered/Resolved]
  - Vomiting [Recovered/Resolved]
  - Transaminases increased [Recovered/Resolved]

NARRATIVE: CASE EVENT DATE: 20101114
